FAERS Safety Report 10383796 (Version 1)
Quarter: 2014Q1

REPORT INFORMATION
  Report Type: Spontaneous
  Country: US (occurrence: None)
  Receive Date: 20140306
  Receipt Date: 20140306
  Transmission Date: 20141002
  Serious: Yes (Hospitalization, Disabling)
  Sender: FDA-Public Use
  Company Number: 163-21880-13044435

PATIENT
  Age: 77 Year
  Sex: Male

DRUGS (6)
  1. REVLIMID (LENALIDOMIDE) (10 MILLIGRAM, CAPSULES) [Suspect]
     Indication: PLASMA CELL MYELOMA
     Dosage: 21 IN 21 D, PO
     Route: 048
     Dates: start: 20130323, end: 20130404
  2. LASIX(FUROSEMIDE)(UNKNOWN) [Concomitant]
  3. DEXAMETHASONE(DEXAMETHASONE)(UNKNOWN) [Concomitant]
  4. INSULIN(INSULIN)(UNKNOWN)? [Concomitant]
  5. METOPROLOL(METOPROLOL) (UNKNOWN) [Concomitant]
  6. SULFASALAZINE(SULFASALAZINE)(UNKNOWN) [Concomitant]

REACTIONS (1)
  - Renal failure acute [None]
